FAERS Safety Report 17170554 (Version 4)
Quarter: 2020Q1

REPORT INFORMATION
  Report Type: Report from Study
  Country: US (occurrence: US)
  Receive Date: 20191218
  Receipt Date: 20200320
  Transmission Date: 20200409
  Serious: Yes (Hospitalization, Other)
  Sender: FDA-Public Use
  Company Number: US-ACTELION-A-US2019-199385

PATIENT
  Age: 62 Year
  Sex: Male
  Weight: 71.2 kg

DRUGS (4)
  1. OPSUMIT [Suspect]
     Active Substance: MACITENTAN
     Indication: PULMONARY ARTERIAL HYPERTENSION
     Dosage: 10 MG, QD
     Route: 048
  2. REMODULIN [Suspect]
     Active Substance: TREPROSTINIL
     Dosage: 3 NG/KG, PER MIN
     Route: 065
  3. TADALAFIL. [Concomitant]
     Active Substance: TADALAFIL
  4. REMODULIN [Suspect]
     Active Substance: TREPROSTINIL
     Indication: PRODUCT USED FOR UNKNOWN INDICATION
     Dosage: 2 NG/KG, PER MIN
     Route: 065

REACTIONS (12)
  - Hepatic encephalopathy [Unknown]
  - Infusion site pain [Unknown]
  - Oedema peripheral [Not Recovered/Not Resolved]
  - Dyspnoea at rest [Unknown]
  - Dyspnoea exertional [Not Recovered/Not Resolved]
  - Muscle spasms [Unknown]
  - Palpitations [Unknown]
  - Liver disorder [Unknown]
  - Pain in extremity [Unknown]
  - Diarrhoea [Unknown]
  - Headache [Unknown]
  - Pain in jaw [Unknown]

NARRATIVE: CASE EVENT DATE: 20200214
